FAERS Safety Report 10983236 (Version 2)
Quarter: 2015Q2

REPORT INFORMATION
  Report Type: Spontaneous
  Country: CL (occurrence: CL)
  Receive Date: 20150403
  Receipt Date: 20150420
  Transmission Date: 20150821
  Serious: Yes (Other)
  Sender: FDA-Public Use
  Company Number: CL-PFIZER INC-2015112074

PATIENT
  Sex: Male

DRUGS (3)
  1. ZAFIN [Concomitant]
     Dosage: AS NEEDED
  2. CELEBRA [Suspect]
     Active Substance: CELECOXIB
     Dosage: 1 DF DAILY AS NEEDED
     Route: 048
     Dates: start: 2009
  3. CELEBRA [Suspect]
     Active Substance: CELECOXIB
     Indication: PAIN
     Dosage: ONCE EVERY 12 HOURS FOR 5 DAYS
     Route: 048
     Dates: start: 2009, end: 2009

REACTIONS (2)
  - Dyspepsia [Not Recovered/Not Resolved]
  - Intestinal haematoma [Recovered/Resolved]

NARRATIVE: CASE EVENT DATE: 201305
